FAERS Safety Report 10359134 (Version 1)
Quarter: 2014Q3

REPORT INFORMATION
  Report Type: Spontaneous
  Country: US (occurrence: None)
  Receive Date: 20140731
  Receipt Date: 20140731
  Transmission Date: 20150326
  Serious: No
  Sender: FDA-Public Use
  Company Number: None

PATIENT
  Age: 40 Year
  Sex: Female
  Weight: 68.04 kg

DRUGS (12)
  1. MULTIVITAMIN [Concomitant]
     Active Substance: VITAMINS
  2. TRAMADOL HCL [Suspect]
     Active Substance: TRAMADOL HYDROCHLORIDE
     Indication: SCIATICA
     Dosage: 50MG?6-8 PILLS PER DAY?2 PILLS 4 TIMES ADAY?MY MOUTH
     Route: 048
     Dates: start: 20140707, end: 20140708
  3. TRAMADOL HCL [Suspect]
     Active Substance: TRAMADOL HYDROCHLORIDE
     Indication: BACK PAIN
     Dosage: 50MG?6-8 PILLS PER DAY?2 PILLS 4 TIMES ADAY?MY MOUTH
     Route: 048
     Dates: start: 20140707, end: 20140708
  4. CYANCOBALAMIN [Concomitant]
  5. FISH OILS [Concomitant]
  6. LUTEIN [Concomitant]
     Active Substance: LUTEIN
  7. C [Concomitant]
  8. GLUCOSAMINE [Concomitant]
     Active Substance: GLUCOSAMINE
  9. LEVOTHYROXINE [Concomitant]
     Active Substance: LEVOTHYROXINE
  10. IRON [Concomitant]
     Active Substance: IRON
  11. VITAMIN B12 [Concomitant]
     Active Substance: CYANOCOBALAMIN
  12. CALCIUM [Concomitant]
     Active Substance: CALCIUM

REACTIONS (4)
  - Product substitution issue [None]
  - Product quality issue [None]
  - Convulsion [None]
  - Loss of consciousness [None]

NARRATIVE: CASE EVENT DATE: 20140707
